FAERS Safety Report 25571806 (Version 2)
Quarter: 2025Q4

REPORT INFORMATION
  Report Type: Spontaneous
  Country: CA (occurrence: CA)
  Receive Date: 20250717
  Receipt Date: 20251015
  Transmission Date: 20260119
  Serious: Yes (Death, Hospitalization, Other)
  Sender: SANDOZ
  Company Number: CA-SANDOZ-SDZ2025CA050554

PATIENT
  Age: 45 Year
  Sex: Male

DRUGS (1)
  1. ZOLEDRONIC ACID [Suspect]
     Active Substance: ZOLEDRONIC ACID
     Indication: Osteoporosis
     Dosage: 1 EVERY 1 YEARS
     Route: 042

REACTIONS (6)
  - Death [Fatal]
  - Ear, nose and throat disorder [Fatal]
  - Gastrointestinal disorder [Fatal]
  - Malaise [Fatal]
  - Nasopharyngitis [Fatal]
  - Sinus disorder [Fatal]
